FAERS Safety Report 9377418 (Version 2)
Quarter: 2013Q3

REPORT INFORMATION
  Report Type: Spontaneous
  Country: JP (occurrence: JP)
  Receive Date: 20130701
  Receipt Date: 20130726
  Transmission Date: 20140515
  Serious: Yes (Death, Hospitalization)
  Sender: FDA-Public Use
  Company Number: JP-PFIZER INC-2013163239

PATIENT
  Age: 81 Year
  Sex: Male
  Weight: 46 kg

DRUGS (4)
  1. TORISEL [Suspect]
     Indication: METASTASES TO BONE
     Dosage: 25 MG, UNK
     Route: 041
     Dates: start: 20130419, end: 20130419
  2. TORISEL [Suspect]
     Dosage: 25 MG, UNK
     Route: 041
     Dates: start: 20130426, end: 20130426
  3. TORISEL [Suspect]
     Dosage: 25 MG, UNK
     Route: 041
     Dates: start: 20130503, end: 20130503
  4. TORISEL [Suspect]
     Dosage: 25 MG, UNK
     Route: 041
     Dates: start: 20130524, end: 20130524

REACTIONS (9)
  - Right ventricular failure [Fatal]
  - Neutropenia [Fatal]
  - Febrile neutropenia [Fatal]
  - Respiratory failure [Fatal]
  - Pneumonia [Fatal]
  - Pyelonephritis acute [Recovered/Resolved]
  - Cellulitis [Recovering/Resolving]
  - Decreased appetite [Unknown]
  - Malaise [Unknown]
